FAERS Safety Report 7586266-8 (Version None)
Quarter: 2011Q3

REPORT INFORMATION
  Report Type: 
  Country: None (occurrence: None)
  Receive Date: 20110701
  Receipt Date: 20110622
  Transmission Date: 20111222
  Serious: Yes (Hospitalization)
  Sender: FDA-Public Use
  Company Number: BE-ABBOTT-11P-013-0734646-01

PATIENT
  Sex: Female

DRUGS (4)
  1. HUMIRA [Suspect]
     Dosage: WEEK 2
     Route: 058
  2. HUMIRA [Suspect]
     Indication: CROHN'S DISEASE
     Dosage: BASELINE
     Route: 058
     Dates: start: 20090925, end: 20090925
  3. HUMIRA [Suspect]
     Route: 058
     Dates: end: 20100315
  4. AZATHIOPRINE [Concomitant]
     Indication: CROHN'S DISEASE
     Dosage: THERAPY DURATION: 8 YEARS, 7 MONTHS

REACTIONS (2)
  - METASTASES TO BONE MARROW [None]
  - PANCYTOPENIA [None]
